FAERS Safety Report 25247403 (Version 1)
Quarter: 2025Q2

REPORT INFORMATION
  Report Type: Report from Study
  Country: US (occurrence: US)
  Receive Date: 20250428
  Receipt Date: 20250428
  Transmission Date: 20250716
  Serious: Yes (Other)
  Sender: SANOFI AVENTIS
  Company Number: US-SA-2024SA311882

PATIENT
  Age: 84 Year
  Sex: Male

DRUGS (15)
  1. DUPILUMAB [Suspect]
     Active Substance: DUPILUMAB
     Indication: Dermatitis atopic
     Dosage: 300 MG, QOW
     Route: 058
     Dates: start: 20220715
  2. MEMANTINE [Concomitant]
     Active Substance: MEMANTINE
  3. LOVASTATIN [Concomitant]
     Active Substance: LOVASTATIN
  4. OMEPRAZOLE [Concomitant]
     Active Substance: OMEPRAZOLE
  5. CALCIUM CARBONATE [Concomitant]
     Active Substance: CALCIUM CARBONATE
  6. LAMICTAL [Concomitant]
     Active Substance: LAMOTRIGINE
  7. LOSARTAN [Concomitant]
     Active Substance: LOSARTAN
  8. GABAPENTIN [Concomitant]
     Active Substance: GABAPENTIN
  9. LEXAPRO [Concomitant]
     Active Substance: ESCITALOPRAM OXALATE
  10. CALCIUM [Concomitant]
     Active Substance: CALCIUM
  11. PANTOPRAZOLE [Concomitant]
     Active Substance: PANTOPRAZOLE
  12. MEDICAL FOOD [Concomitant]
     Active Substance: MEDICAL FOOD
  13. VITAMIN D3 [Concomitant]
     Active Substance: CHOLECALCIFEROL
  14. DONEPEZIL [Concomitant]
     Active Substance: DONEPEZIL
  15. ATOMOXETINE [Concomitant]
     Active Substance: ATOMOXETINE

REACTIONS (4)
  - Plasma cell myeloma [Unknown]
  - Sjogren^s syndrome [Unknown]
  - Systemic lupus erythematosus [Unknown]
  - Influenza [Unknown]

NARRATIVE: CASE EVENT DATE: 20241111
